FAERS Safety Report 4631080-6 (Version None)
Quarter: 2005Q2

REPORT INFORMATION
  Report Type: 
  Country: None (occurrence: None)
  Receive Date: 20050406
  Receipt Date: 20050406
  Transmission Date: 20051028
  Serious: No
  Sender: FDA-Public Use
  Company Number: None

PATIENT
  Sex: Male
  Weight: 118.8424 kg

DRUGS (2)
  1. COUMADIN [Suspect]
     Indication: ATRIAL FIBRILLATION
     Dosage: 2MG PO DAILY     LIFETIME
     Route: 048
  2. COUMADIN [Suspect]
     Dosage: 6 MG PO DAILY

REACTIONS (1)
  - INTERNATIONAL NORMALISED RATIO FLUCTUATION [None]
